FAERS Safety Report 23687864 (Version 1)
Quarter: 2024Q1

REPORT INFORMATION
  Report Type: Spontaneous
  Country: US (occurrence: US)
  Receive Date: 20240329
  Receipt Date: 20240329
  Transmission Date: 20240409
  Serious: Yes (Other)
  Sender: FDA-Public Use
  Company Number: US-BRISTOL-MYERS SQUIBB COMPANY-2024-047043

PATIENT
  Age: 76 Year
  Sex: Female

DRUGS (1)
  1. LENALIDOMIDE [Suspect]
     Active Substance: LENALIDOMIDE
     Indication: Plasma cell myeloma
     Dosage: TAKE 1 CAPSULE (15MG) BY MOUTH EVERY DAY ON DAYS 1- 21 EVERY 28 DAY CYCLE
     Route: 048

REACTIONS (4)
  - Tachycardia [Recovering/Resolving]
  - Palpitations [Recovering/Resolving]
  - Thyroid disorder [Unknown]
  - Alopecia [Unknown]
